FAERS Safety Report 6039551-5 (Version None)
Quarter: 2009Q1

REPORT INFORMATION
  Report Type: 
  Country: None (occurrence: None)
  Receive Date: 20090116
  Receipt Date: 20090114
  Transmission Date: 20090719
  Serious: Yes (Other)
  Sender: FDA-Public Use
  Company Number: TW-JNJFOC-20090102509

PATIENT
  Sex: Female

DRUGS (1)
  1. HALDOL [Suspect]
     Indication: DEPRESSION
     Dosage: IMMEDIATELY
     Route: 030

REACTIONS (2)
  - DROOLING [None]
  - DYSKINESIA [None]
